FAERS Safety Report 9276001 (Version 1)
Quarter: 2013Q2

REPORT INFORMATION
  Report Type: Spontaneous
  Country: FR (occurrence: FR)
  Receive Date: 20130507
  Receipt Date: 20130507
  Transmission Date: 20140414
  Serious: Yes (Other)
  Sender: FDA-Public Use
  Company Number: FR-B.I. PHARMACEUTICALS,INC./RIDGEFIELD-2013-FF-01270FF

PATIENT
  Sex: Male

DRUGS (1)
  1. SIFROL [Suspect]
     Indication: PARKINSON^S DISEASE
     Route: 048
     Dates: start: 201005

REACTIONS (6)
  - Impulse-control disorder [Not Recovered/Not Resolved]
  - Eating disorder [Not Recovered/Not Resolved]
  - Psychomotor hyperactivity [Not Recovered/Not Resolved]
  - Hypersexuality [Not Recovered/Not Resolved]
  - Pathological gambling [Not Recovered/Not Resolved]
  - Stereotypy [Not Recovered/Not Resolved]
